FAERS Safety Report 7477593-3 (Version None)
Quarter: 2011Q2

REPORT INFORMATION
  Report Type: 
  Country: None (occurrence: None)
  Receive Date: 20110505
  Receipt Date: 20110425
  Transmission Date: 20111010
  Serious: Yes (Disabling, Other)
  Sender: FDA-Public Use
  Company Number: ACO_23670_2011

PATIENT
  Age: 56 Year
  Sex: Female

DRUGS (9)
  1. TYSABRI [Concomitant]
  2. VITAMIN TAB [Concomitant]
  3. ERGOCALCIFEROL [Concomitant]
  4. VITAMIN D /00107901/ (EROCALCIFEROL) [Concomitant]
  5. LEXAPRO [Concomitant]
  6. AMPYRA [Suspect]
     Indication: PRODUCT USED FOR UNKNOWN INDICATION
     Dosage: 10MG, Q 12 HRS, ORAL
     Route: 048
     Dates: start: 20110329
  7. EXCEDRIN /00110301/ (ACETYLSALICYLIC ACID, CAFFEINE, SALICYLAMIDE) [Concomitant]
  8. TIZANIDINE (TIZANIDINE) [Concomitant]
  9. DETROL [Concomitant]

REACTIONS (2)
  - BALANCE DISORDER [None]
  - RESTLESS LEGS SYNDROME [None]
